FAERS Safety Report 10304379 (Version 4)
Quarter: 2014Q4

REPORT INFORMATION
  Report Type: Report from Study
  Country: FR (occurrence: FR)
  Receive Date: 20140715
  Receipt Date: 20141229
  Transmission Date: 20150528
  Serious: Yes (Hospitalization)
  Sender: FDA-Public Use
  Company Number: FR-PFIZER INC-2014189322

PATIENT
  Age: 64 Year
  Sex: Female
  Weight: 76 kg

DRUGS (4)
  1. LIPANOR [Concomitant]
     Active Substance: CIPROFIBRATE
     Indication: LIPID METABOLISM DISORDER
     Dosage: 100 MG, 1X/DAY
     Route: 048
     Dates: start: 2002
  2. XANAX [Concomitant]
     Active Substance: ALPRAZOLAM
     Indication: ANXIETY
     Dosage: 0.5 MG, 1X/DAY BEFORE SLEEP
     Route: 048
     Dates: start: 2000
  3. TOFACITINIB CITRATE [Suspect]
     Active Substance: TOFACITINIB CITRATE
     Indication: PSORIASIS
     Dosage: 10 MG, 2X/DAY
     Route: 048
     Dates: start: 20121218, end: 20140612
  4. COOLMETEC [Concomitant]
     Active Substance: HYDROCHLOROTHIAZIDE\OLMESARTAN MEDOXOMIL
     Indication: HYPERTENSION
     Dosage: 40 MG, 1X/DAY
     Route: 048
     Dates: start: 2009, end: 20140612

REACTIONS (2)
  - Metastases to pleura [Not Recovered/Not Resolved]
  - Female reproductive neoplasm [Not Recovered/Not Resolved]

NARRATIVE: CASE EVENT DATE: 20140612
